FAERS Safety Report 7262730-6 (Version None)
Quarter: 2011Q1

REPORT INFORMATION
  Report Type: 
  Country: None (occurrence: None)
  Receive Date: 20110130
  Receipt Date: 20100913
  Transmission Date: 20110831
  Serious: No
  Sender: FDA-Public Use
  Company Number: US-ABBOTT-10P-163-0670623-00

PATIENT
  Age: 52 Year
  Sex: Female

DRUGS (5)
  1. CALCIUM [Concomitant]
     Indication: PRODUCT USED FOR UNKNOWN INDICATION
  2. ZOMIG [Concomitant]
     Indication: MIGRAINE
  3. MULTIVITAMIN [Concomitant]
     Indication: PRODUCT USED FOR UNKNOWN INDICATION
  4. HUMIRA [Suspect]
     Indication: PSORIATIC ARTHROPATHY
     Dates: start: 20090301
  5. CAPRA [Concomitant]
     Indication: CONVULSION
     Dosage: DAILY DOSE: 2000MG

REACTIONS (7)
  - CONCUSSION [None]
  - JOINT SWELLING [None]
  - JOINT INJURY [None]
  - LOSS OF CONSCIOUSNESS [None]
  - HEAD INJURY [None]
  - PAIN [None]
  - JOINT FLUID DRAINAGE [None]
